FAERS Safety Report 16577660 (Version 1)
Quarter: 2019Q3

REPORT INFORMATION
  Report Type: Spontaneous
  Country: FR (occurrence: FR)
  Receive Date: 20190716
  Receipt Date: 20190716
  Transmission Date: 20191004
  Serious: Yes (Hospitalization)
  Sender: FDA-Public Use
  Company Number: FR-009507513-1907FRA004953

PATIENT
  Age: 82 Year
  Sex: Male
  Weight: 76 kg

DRUGS (9)
  1. ELIQUIS [Concomitant]
     Active Substance: APIXABAN
     Indication: CARDIOVASCULAR EVENT PROPHYLAXIS
     Dosage: 2 DOSAGE FORM, QD
     Route: 048
  2. AMLOR [Concomitant]
     Active Substance: AMLODIPINE BESYLATE
     Indication: HYPERTENSION
     Dosage: 1 DOSAGE FORM, QD
     Route: 048
  3. ATORVASTATIN [Concomitant]
     Active Substance: ATORVASTATIN
     Indication: HYPERCHOLESTEROLAEMIA
     Dosage: 10 MILLIGRAM, QD
     Route: 048
  4. JANUMET [Suspect]
     Active Substance: METFORMIN HYDROCHLORIDE\SITAGLIPTIN PHOSPHATE
     Indication: TYPE 2 DIABETES MELLITUS
     Dosage: 2 DOSAGE FORM, QD
     Route: 048
     Dates: end: 20190102
  5. PANTOPRAZOLE [Concomitant]
     Active Substance: PANTOPRAZOLE
     Indication: GASTROOESOPHAGEAL REFLUX PROPHYLAXIS
     Dosage: 20 MILLIGRAM, QD
     Route: 048
  6. LASILIX [Concomitant]
     Active Substance: FUROSEMIDE
     Indication: RENAL FAILURE
     Dosage: 1 DOSAGE FORM, QD
     Route: 048
  7. OMEXEL [Concomitant]
     Active Substance: TAMSULOSIN HYDROCHLORIDE
     Indication: BENIGN PROSTATIC HYPERPLASIA
     Dosage: 1 DOSAGE FORM, QD
     Route: 048
  8. ALDACTONE [Concomitant]
     Active Substance: SPIRONOLACTONE
     Indication: HYPERTENSION
     Dosage: 1 DOSAGE FORM, QD
     Route: 048
  9. BISOCE [Concomitant]
     Active Substance: BISOPROLOL
     Indication: CARDIAC FAILURE CHRONIC
     Dosage: 1 DOSAGE FORM, QD
     Route: 048

REACTIONS (2)
  - Prescribed overdose [Recovered/Resolved]
  - Lactic acidosis [Recovered/Resolved]

NARRATIVE: CASE EVENT DATE: 20190101
